FAERS Safety Report 23399496 (Version 3)
Quarter: 2024Q1

REPORT INFORMATION
  Report Type: Spontaneous
  Country: ES (occurrence: ES)
  Receive Date: 20240113
  Receipt Date: 20240313
  Transmission Date: 20240410
  Serious: Yes (Death, Hospitalization, Other)
  Sender: FDA-Public Use
  Company Number: ES-PFIZER INC-PV202400003638

PATIENT
  Age: 8 Day
  Sex: Female
  Weight: 0.7 kg

DRUGS (7)
  1. CEFTAROLINE FOSAMIL [Suspect]
     Active Substance: CEFTAROLINE FOSAMIL
     Indication: Staphylococcal infection
     Dosage: TIME INTERVAL: 0.33333333 DAYS: DOSE: 4.5 MG, 3X/DAY (4.5 MG/8 HOURS)
     Route: 042
     Dates: start: 20231116, end: 20231121
  2. CEFTAROLINE FOSAMIL [Suspect]
     Active Substance: CEFTAROLINE FOSAMIL
     Indication: Staphylococcal infection
     Route: 065
  3. DOPAMINE [Suspect]
     Active Substance: DOPAMINE HYDROCHLORIDE
     Indication: Hypotension
     Dosage: UNK
     Route: 065
     Dates: start: 20231115, end: 20231115
  4. VANCOMYCIN HYDROCHLORIDE [Suspect]
     Active Substance: VANCOMYCIN HYDROCHLORIDE
     Indication: Sepsis
     Dosage: 10.5 MG, 2X/DAY
     Route: 065
     Dates: start: 20231114, end: 20231116
  5. NOREPINEPHRINE [Suspect]
     Active Substance: NOREPINEPHRINE\NOREPINEPHRINE BITARTRATE
     Indication: Hypotension
     Dosage: UNK
     Route: 065
     Dates: start: 20231115, end: 20231115
  6. CEFTAZIDIME [Concomitant]
     Active Substance: CEFTAZIDIME
     Indication: Sepsis
     Dosage: DOSE: 35 MG, 2X/DAY (35 MG/12 HOURS)
     Dates: start: 20231114, end: 20231118
  7. HYDROCORTISONE [Concomitant]
     Active Substance: HYDROCORTISONE
     Indication: Hypotension
     Dosage: DOSE: 0.7 MG
     Dates: start: 20231115, end: 20231115

REACTIONS (2)
  - Renal failure neonatal [Fatal]
  - Condition aggravated [Fatal]

NARRATIVE: CASE EVENT DATE: 20231115
